FAERS Safety Report 10076744 (Version 2)
Quarter: 2014Q2

REPORT INFORMATION
  Report Type: Spontaneous
  Country: US (occurrence: US)
  Receive Date: 20140414
  Receipt Date: 20140423
  Transmission Date: 20141212
  Serious: Yes (Hospitalization, Other)
  Sender: FDA-Public Use
  Company Number: US-B.I. PHARMACEUTICALS,INC./RIDGEFIELD-2014-BI-16154BP

PATIENT
  Age: 77 Year
  Sex: Male

DRUGS (2)
  1. SPIRIVA [Suspect]
     Indication: CHRONIC OBSTRUCTIVE PULMONARY DISEASE
     Dosage: 18 MCG
     Route: 055
     Dates: start: 2004
  2. SPIRIVA [Suspect]
     Indication: EMPHYSEMA

REACTIONS (5)
  - Lung neoplasm malignant [Not Recovered/Not Resolved]
  - Muscle spasms [Recovered/Resolved]
  - Product quality issue [Not Recovered/Not Resolved]
  - Product quality issue [Not Recovered/Not Resolved]
  - Product quality issue [Not Recovered/Not Resolved]
